FAERS Safety Report 8984651 (Version 1)
Quarter: 2012Q4

REPORT INFORMATION
  Report Type: Spontaneous
  Country: US (occurrence: None)
  Receive Date: 20121218
  Receipt Date: 20121218
  Transmission Date: 20130627
  Serious: Yes (Hospitalization, Other)
  Sender: FDA-Public Use
  Company Number: KAD201212-000507

PATIENT
  Age: 47 Year
  Sex: Female
  Weight: 96.16 kg

DRUGS (11)
  1. RIBASPHERE [Suspect]
     Dosage: 2 TABLETS IN THE MORNING AND 2 TABLETS IN THE EVENING
     Route: 048
     Dates: end: 20121128
  2. RIBASPHERE [Suspect]
     Dosage: 2 TABLETS IN THE MORNING AND 1 TABLET IN THE EVENING (STRENGTH:200 MG)
     Route: 048
     Dates: start: 20121128
  3. COPEGUS [Suspect]
     Dosage: (STRENGTH:200 MG) 4 TABLETS IN THE MORNING AND 4 TABLETS IN THE EVENING
     Route: 048
  4. PEGASYS [Suspect]
     Route: 058
  5. INCIVEK [Suspect]
  6. NEXIUM [Concomitant]
     Dosage: 40 mg daily (strength:40 mg), Oral
     Route: 048
  7. GEODON [Concomitant]
     Dosage: 80 mg daily (strength:80 mg), Oral
     Route: 048
  8. CLONIDINE [Concomitant]
     Dosage: 0.1 mg daily (strength:0.1mg), Oral
     Route: 048
  9. BUSPIRONE [Concomitant]
     Dosage: 10 mg, twice daily, total dose:20 mg daily (strength:10 mg), Oral
     Route: 048
  10. ZOLOFT [Concomitant]
     Route: 048
  11. TRAZODONE [Concomitant]
     Dosage: 300 mg tablets daily (strength:100 mg), Oral
     Route: 048

REACTIONS (13)
  - Weight decreased [None]
  - Cystitis [None]
  - Influenza [None]
  - Pneumonia [None]
  - Vomiting [None]
  - Eating disorder [None]
  - Alopecia [None]
  - Gastrooesophageal reflux disease [None]
  - Diarrhoea [None]
  - Asthenia [None]
  - Rash [None]
  - Nausea [None]
  - Malaise [None]
